FAERS Safety Report 22379451 (Version 1)
Quarter: 2023Q2

REPORT INFORMATION
  Report Type: Spontaneous
  Country: FR (occurrence: FR)
  Receive Date: 20230529
  Receipt Date: 20230529
  Transmission Date: 20230721
  Serious: Yes (Death, Hospitalization)
  Sender: FDA-Public Use
  Company Number: None

PATIENT

DRUGS (1)
  1. IVOSIDENIB [Suspect]
     Active Substance: IVOSIDENIB
     Indication: Acute myeloid leukaemia
     Dosage: UNK
     Route: 048
     Dates: start: 202303

REACTIONS (1)
  - Differentiation syndrome [Fatal]

NARRATIVE: CASE EVENT DATE: 20230316
